FAERS Safety Report 8319582-2 (Version None)
Quarter: 2012Q2

REPORT INFORMATION
  Report Type: 
  Country: None (occurrence: None)
  Receive Date: 20120427
  Receipt Date: 20120423
  Transmission Date: 20120825
  Serious: Yes (Death, Hospitalization)
  Sender: FDA-Public Use
  Company Number: PHHY2012US035518

PATIENT
  Age: 31 Year
  Sex: Female

DRUGS (4)
  1. DILTIAZEM [Suspect]
     Dosage: 20 DF, UNK
  2. LISINOPRIL [Suspect]
     Dosage: 10 DF, UNK
  3. METOPROLOL TARTRATE [Suspect]
     Dosage: 10 DF, UNK
  4. AMIODARONE HCL [Suspect]
     Dosage: 10 DF, UNK

REACTIONS (7)
  - DYSPNOEA [None]
  - ASTHENIA [None]
  - SOMNOLENCE [None]
  - COMPLETED SUICIDE [None]
  - HYPOTENSION [None]
  - CARDIAC ARREST [None]
  - TOXICITY TO VARIOUS AGENTS [None]
